FAERS Safety Report 6846608-5 (Version None)
Quarter: 2010Q3

REPORT INFORMATION
  Report Type: 
  Country: None (occurrence: None)
  Receive Date: 20100715
  Receipt Date: 20080201
  Transmission Date: 20110219
  Serious: No
  Sender: FDA-Public Use
  Company Number: US-PFIZER INC-2007079161

PATIENT
  Sex: Female
  Weight: 56.818 kg

DRUGS (6)
  1. CHANTIX [Suspect]
     Indication: SMOKING CESSATION THERAPY
     Route: 048
     Dates: start: 20070912
  2. CHANTIX [Suspect]
     Indication: TOBACCO ABUSE
  3. ALL OTHER THERAPEUTIC PRODUCTS [Concomitant]
  4. METHADONE HCL [Concomitant]
     Indication: IMPAIRED GASTRIC EMPTYING
  5. NASONEX [Concomitant]
  6. LYRICA [Concomitant]

REACTIONS (20)
  - ABDOMINAL DISTENSION [None]
  - AGGRESSION [None]
  - AGITATION [None]
  - BRONCHITIS [None]
  - CHRONIC OBSTRUCTIVE PULMONARY DISEASE [None]
  - CONSTIPATION [None]
  - COUGH [None]
  - DISCOMFORT [None]
  - DRUG INTOLERANCE [None]
  - INCREASED APPETITE [None]
  - INCREASED UPPER AIRWAY SECRETION [None]
  - INSOMNIA [None]
  - MALAISE [None]
  - MUSCLE SPASMS [None]
  - NAUSEA [None]
  - NERVOUSNESS [None]
  - NIGHT SWEATS [None]
  - RASH [None]
  - SOMNOLENCE [None]
  - VERTIGO [None]
